FAERS Safety Report 11783550 (Version 2)
Quarter: 2017Q2

REPORT INFORMATION
  Report Type: Report from Study
  Country: IN (occurrence: IN)
  Receive Date: 20151127
  Receipt Date: 20170519
  Transmission Date: 20170829
  Serious: Yes (Death, Other)
  Sender: FDA-Public Use
  Company Number: IN-UCBSA-2015038319

PATIENT

DRUGS (7)
  1. LEVETIRACETAM. [Suspect]
     Active Substance: LEVETIRACETAM
     Indication: EPILEPSY
     Dosage: 250 MG, 2X/DAY (BID)
     Route: 064
  2. LEVETIRACETAM. [Suspect]
     Active Substance: LEVETIRACETAM
     Dosage: 500 MG, ONCE DAILY (QD)
     Route: 064
  3. LEVETIRACETAM. [Suspect]
     Active Substance: LEVETIRACETAM
     Dosage: 250 MG, ONCE DAILY (QD)
     Route: 064
  4. LEVETIRACETAM. [Suspect]
     Active Substance: LEVETIRACETAM
     Dosage: 250 MG, 2X/DAY (BID)
     Route: 064
  5. IRON [Concomitant]
     Active Substance: IRON
     Indication: PRODUCT USED FOR UNKNOWN INDICATION
     Route: 064
  6. LEVETIRACETAM. [Suspect]
     Active Substance: LEVETIRACETAM
     Dosage: 500 MG, 2X/DAY (BID)
     Route: 064
  7. LACOSAMIDE. [Suspect]
     Active Substance: LACOSAMIDE
     Indication: EPILEPSY
     Dosage: UNK UNK, ONCE DAILY (QD)
     Route: 064

REACTIONS (3)
  - Death [Fatal]
  - Premature baby [Unknown]
  - Foetal exposure during pregnancy [Unknown]
